FAERS Safety Report 4745025-1 (Version None)
Quarter: 2005Q3

REPORT INFORMATION
  Report Type: 
  Country: None (occurrence: None)
  Receive Date: 20050811
  Receipt Date: 20050802
  Transmission Date: 20060218
  Serious: Yes (Hospitalization)
  Sender: FDA-Public Use
  Company Number: CIP05001411

PATIENT
  Age: 79 Year
  Sex: Female

DRUGS (4)
  1. ACTONEL [Suspect]
     Dosage: 35 MG, 1 /WEEK, ORAL
     Route: 048
     Dates: end: 20050501
  2. ACTONEL [Suspect]
     Dosage: 35 MG, 1 /WEEK, ORAL
     Route: 048
     Dates: start: 20050803
  3. SYNTHROID [Concomitant]
  4. HYPNOTICS AND SEDATIVES [Concomitant]

REACTIONS (4)
  - ABDOMINAL PAIN [None]
  - ENTEROCOLITIS INFECTIOUS [None]
  - GASTRIC DISORDER [None]
  - WHITE BLOOD CELL COUNT INCREASED [None]
